FAERS Safety Report 15301019 (Version 1)
Quarter: 2018Q3

REPORT INFORMATION
  Report Type: Report from Study
  Country: CN (occurrence: CN)
  Receive Date: 20180821
  Receipt Date: 20180821
  Transmission Date: 20181010
  Serious: Yes (Other)
  Sender: FDA-Public Use
  Company Number: CN-ROCHE-2171087

PATIENT

DRUGS (3)
  1. CISPLATIN. [Suspect]
     Active Substance: CISPLATIN
     Indication: GASTRIC CANCER
     Dosage: D1, D3, D5 ON EVERY 3 WEEK, TOTAL 18 WEEKS
     Route: 033
  2. BEVACIZUMAB. [Suspect]
     Active Substance: BEVACIZUMAB
     Indication: GASTRIC CANCER
     Dosage: D1 ON EVERY 3 WEEKS, TOTAL 18 WEEKS
     Route: 041
  3. 5?FLUOROURACIL [Suspect]
     Active Substance: FLUOROURACIL
     Indication: GASTRIC CANCER
     Dosage: D1, D3, D5 ON EVERY 3 WEEK, TOTAL 18 WEEKS
     Route: 041

REACTIONS (8)
  - Nausea [Unknown]
  - White blood cell count decreased [Unknown]
  - Renal impairment [Unknown]
  - Neurotoxicity [Unknown]
  - Anaemia [Unknown]
  - Platelet count decreased [Unknown]
  - Vomiting [Unknown]
  - Hepatic function abnormal [Unknown]
